FAERS Safety Report 14160191 (Version 2)
Quarter: 2018Q4

REPORT INFORMATION
  Report Type: Spontaneous
  Country: TH (occurrence: TH)
  Receive Date: 20171106
  Receipt Date: 20181128
  Transmission Date: 20190204
  Serious: Yes (Other)
  Sender: FDA-Public Use
  Company Number: TH-ROCHE-2020074

PATIENT
  Age: 66 Year
  Sex: Male

DRUGS (1)
  1. ACTILYSE [Suspect]
     Active Substance: ALTEPLASE
     Indication: HEMIPARESIS
     Route: 065

REACTIONS (4)
  - Cerebral haemorrhage [Unknown]
  - Intraventricular haemorrhage [Unknown]
  - Cerebral infarction [Unknown]
  - Cerebellar haemorrhage [Unknown]

NARRATIVE: CASE EVENT DATE: 201604
